FAERS Safety Report 10434038 (Version 1)
Quarter: 2014Q3

REPORT INFORMATION
  Report Type: Spontaneous
  Country: DE (occurrence: DE)
  Receive Date: 20140905
  Receipt Date: 20140905
  Transmission Date: 20150326
  Serious: Yes (Other)
  Sender: FDA-Public Use
  Company Number: DE-VIIV HEALTHCARE LIMITED-D0083996A

PATIENT
  Sex: Male

DRUGS (1)
  1. TIVICAY [Suspect]
     Active Substance: DOLUTEGRAVIR SODIUM
     Indication: HIV INFECTION
     Dosage: 50MG UNKNOWN
     Route: 048

REACTIONS (2)
  - Immune reconstitution inflammatory syndrome [Unknown]
  - Pneumocystis jirovecii infection [Unknown]
